FAERS Safety Report 18349791 (Version 7)
Quarter: 2021Q1

REPORT INFORMATION
  Report Type: Spontaneous
  Country: US (occurrence: US)
  Receive Date: 20201006
  Receipt Date: 20210305
  Transmission Date: 20210419
  Serious: Yes (Other)
  Sender: FDA-Public Use
  Company Number: US-PFIZER INC-2020383820

PATIENT
  Age: 84 Year
  Sex: Female
  Weight: 72.56 kg

DRUGS (22)
  1. IBRANCE [Interacting]
     Active Substance: PALBOCICLIB
     Dosage: 75 MG, CYCLIC(DAILY FOR 21 DAYS, THEN 7 DAYS OFF)
     Route: 048
     Dates: start: 20200904
  2. MORPHINE [Concomitant]
     Active Substance: MORPHINE
     Dosage: UNK
  3. OXYCODONE AND ACETAMINOPHEN [Interacting]
     Active Substance: ACETAMINOPHEN\OXYCODONE HYDROCHLORIDE
     Dosage: 10 MG (32)
  4. CEPHALEXIN [CEFALEXIN] [Concomitant]
     Active Substance: CEPHALEXIN
     Dosage: UNK
  5. ETODOLAC. [Concomitant]
     Active Substance: ETODOLAC
     Dosage: 400 MG
  6. BENZONATATE. [Concomitant]
     Active Substance: BENZONATATE
     Dosage: 100 MG
  7. CLOTRIMAZOLE AND BETAMETHASONE [Concomitant]
     Active Substance: BETAMETHASONE\CLOTRIMAZOLE
     Dosage: UNK
  8. ALPRAZOLAM. [Concomitant]
     Active Substance: ALPRAZOLAM
     Dosage: 0.5 MG
  9. AMLODIPINE [Concomitant]
     Active Substance: AMLODIPINE BESYLATE
     Dosage: 5 MG (20)
  10. GUAIFENESIN. [Concomitant]
     Active Substance: GUAIFENESIN
     Dosage: 400 MG
  11. IBRANCE [Interacting]
     Active Substance: PALBOCICLIB
     Dosage: 75 MG, CYCLIC(DAILY FOR 21 DAYS, THEN 7 DAYS OFF)
     Route: 048
     Dates: start: 20200904
  12. PREGABALIN. [Concomitant]
     Active Substance: PREGABALIN
     Dosage: UNK
  13. TOUJEO [Concomitant]
     Active Substance: INSULIN GLARGINE
     Dosage: UNK
  14. TOUJEO MAX [Concomitant]
     Active Substance: INSULIN GLARGINE
     Dosage: 300 ML
  15. IBRANCE [Suspect]
     Active Substance: PALBOCICLIB
     Indication: BREAST CANCER FEMALE
     Dosage: 75 MG, CYCLIC [1 DAILY FOR 21 DAYS]
     Route: 048
     Dates: start: 20200904
  16. ANASTROZOLE. [Concomitant]
     Active Substance: ANASTROZOLE
     Dosage: 1 MG
  17. BACLOFEN. [Concomitant]
     Active Substance: BACLOFEN
     Dosage: 10 MG
  18. ONDANSETRON [Concomitant]
     Active Substance: ONDANSETRON
     Dosage: UNK
  19. AZITHROMYCIN ANHYDROUS. [Concomitant]
     Active Substance: AZITHROMYCIN ANHYDROUS
     Dosage: 250 MG
  20. ELIQUIS [Concomitant]
     Active Substance: APIXABAN
     Dosage: 5 MG
  21. PERCOCET [Concomitant]
     Active Substance: ACETAMINOPHEN\OXYCODONE HYDROCHLORIDE
     Dosage: UNK
  22. SIMVASTATIN. [Concomitant]
     Active Substance: SIMVASTATIN
     Dosage: 20 MG

REACTIONS (17)
  - Nasal congestion [Unknown]
  - Dyspnoea [Unknown]
  - Somnolence [Unknown]
  - Neoplasm progression [Unknown]
  - Oropharyngeal discomfort [Unknown]
  - Gait disturbance [Not Recovered/Not Resolved]
  - Pain in extremity [Unknown]
  - Abdominal discomfort [Unknown]
  - Drug interaction [Unknown]
  - Malaise [Not Recovered/Not Resolved]
  - Pain [Recovering/Resolving]
  - Nodule [Unknown]
  - Cough [Unknown]
  - Product dose omission issue [Unknown]
  - Fatigue [Not Recovered/Not Resolved]
  - Musculoskeletal stiffness [Unknown]
  - Peripheral swelling [Unknown]

NARRATIVE: CASE EVENT DATE: 2020
